FAERS Safety Report 6276032-8 (Version None)
Quarter: 2009Q3

REPORT INFORMATION
  Report Type: 
  Country: None (occurrence: None)
  Receive Date: 20090722
  Receipt Date: 20070516
  Transmission Date: 20100115
  Serious: Yes (Hospitalization, Other)
  Sender: FDA-Public Use
  Company Number: US-ASTRAZENECA-2006UW27679

PATIENT
  Age: 15239 Day
  Sex: Male
  Weight: 108.4 kg

DRUGS (28)
  1. SEROQUEL [Suspect]
     Indication: BIPOLAR DISORDER
     Dosage: 50 - 600 MG FLUCTUATING
     Route: 048
     Dates: start: 20021001
  2. SEROQUEL [Suspect]
     Indication: AGITATION
     Dosage: 50 - 600 MG FLUCTUATING
     Route: 048
     Dates: start: 20021001
  3. SEROQUEL [Suspect]
     Dosage: 100 MG TO 600 MG
     Route: 048
     Dates: start: 20030313
  4. SEROQUEL [Suspect]
     Dosage: 100 MG TO 600 MG
     Route: 048
     Dates: start: 20030313
  5. TRILAFON [Concomitant]
     Dates: start: 19860101
  6. HALDOL [Concomitant]
     Indication: AGITATION
     Dosage: 5 - 10 MG FLUCTUATING
     Dates: start: 19851021
  7. HALDOL [Concomitant]
     Dosage: 10-150 MG
     Dates: start: 19851001, end: 19981001
  8. ZYPREXA [Concomitant]
     Route: 060
     Dates: start: 20021001
  9. ZYPREXA [Concomitant]
     Dates: start: 20060901
  10. TEGRETOL [Concomitant]
     Dates: start: 20021001
  11. LOPRESSOR [Concomitant]
     Indication: HYPERTENSION
     Route: 048
     Dates: start: 20030517
  12. NORVASC [Concomitant]
     Indication: HYPERTENSION
     Dosage: 5 - 10 MG DAILY
     Route: 048
     Dates: start: 20030211
  13. DEPAKOTE [Concomitant]
     Dosage: 250 - 500 MG
     Dates: start: 19970806
  14. LITHIUM [Concomitant]
     Dosage: 400 - 1800 MG FLUCTUATING
     Dates: start: 19870101
  15. LITHIUM [Concomitant]
     Dosage: 300 MG TO 600 MG
     Dates: start: 19870101, end: 20050701
  16. REGLAN [Concomitant]
     Dosage: 10 MG HALF AN HOUR BEFORE FOOD AND AT BED TIME 1 HOUR BEFORE MEALS, 10 MG 4 X DAILY, 10 MG
     Route: 048
     Dates: start: 20040806, end: 20080831
  17. LISINOPRIL [Concomitant]
     Indication: HYPERTENSION
     Dates: start: 20030517, end: 20080831
  18. TRIHEXYPHENIDYL [Concomitant]
     Dosage: 5 MG 2 DAILY
     Route: 048
     Dates: start: 20051214
  19. VYTORIN [Concomitant]
     Dosage: 10 / 20 MG QHS
     Route: 048
     Dates: start: 20060417, end: 20080831
  20. HYDROMORPHONE HCL [Concomitant]
     Dosage: 2 MG/ML INJECTION, 1-2 MG, PRN
     Dates: start: 20050605
  21. COGENTIN [Concomitant]
     Dosage: 1 - 2 MG BID, 2 MG TID
     Dates: start: 19851021
  22. LIBRIUM [Concomitant]
     Dosage: 10 MG TID, 10 MG Q. 6 HOURS
     Dates: start: 19851021
  23. THORAZINE [Concomitant]
     Dosage: 10 MG IM Q. 3 HOURS PRN, 100 MG TID PO IM
     Dates: start: 19851021
  24. THORAZINE [Concomitant]
     Dates: start: 19851001
  25. ARTANE [Concomitant]
     Indication: PARKINSONISM
     Dosage: 5 MG P.O. 2 X DAILY, 2 MG TID
     Dates: start: 19860625, end: 20080831
  26. RISPERDAL / RISPERDAL CONSTA [Concomitant]
     Dosage: 2 X MONTHLY, 50 MG Q2W, 37.5 MG
     Route: 030
     Dates: start: 20020925
  27. RISPERDAL / RISPERDAL CONSTA [Concomitant]
     Dates: start: 20050101, end: 20080101
  28. RISPERDAL / RISPERDAL CONSTA [Concomitant]
     Route: 048
     Dates: start: 20051220

REACTIONS (10)
  - BLOOD CHOLESTEROL INCREASED [None]
  - DIABETES MELLITUS [None]
  - DIABETES MELLITUS INADEQUATE CONTROL [None]
  - DIABETIC GASTROPARESIS [None]
  - DIABETIC NEUROPATHY [None]
  - DYSLIPIDAEMIA [None]
  - HYPERLIPIDAEMIA [None]
  - IMPAIRED GASTRIC EMPTYING [None]
  - NEUROPATHY PERIPHERAL [None]
  - OBESITY [None]
